FAERS Safety Report 5068461-5 (Version None)
Quarter: 2006Q3

REPORT INFORMATION
  Report Type: 
  Country: None (occurrence: None)
  Receive Date: 20060802
  Receipt Date: 20051011
  Transmission Date: 20061208
  Serious: No
  Sender: FDA-Public Use
  Company Number: US-BRISTOL-MYERS SQUIBB COMPANY-13140926

PATIENT
  Age: 48 Year
  Sex: Female
  Weight: 95 kg

DRUGS (3)
  1. COUMADIN [Suspect]
     Indication: ATRIAL SEPTAL DEFECT
     Route: 048
  2. BENADRYL [Concomitant]
  3. PREVACID [Concomitant]

REACTIONS (4)
  - HYPOAESTHESIA [None]
  - INTERNATIONAL NORMALISED RATIO INCREASED [None]
  - PAIN IN EXTREMITY [None]
  - SKIN REACTION [None]
